FAERS Safety Report 10453183 (Version 4)
Quarter: 2015Q3

REPORT INFORMATION
  Report Type: Report from Study
  Country: US (occurrence: US)
  Receive Date: 20140915
  Receipt Date: 20150902
  Transmission Date: 20151125
  Serious: Yes (Other)
  Sender: FDA-Public Use
  Company Number: US-SA-2014SA125127

PATIENT
  Age: 64 Year
  Sex: Female

DRUGS (5)
  1. AUBAGIO [Suspect]
     Active Substance: TERIFLUNOMIDE
     Indication: MULTIPLE SCLEROSIS
     Route: 048
     Dates: start: 20130201
  2. METOPROLOL [Concomitant]
     Active Substance: METOPROLOL
  3. TIZANIDINE. [Concomitant]
     Active Substance: TIZANIDINE
  4. VITAMINS NOS [Concomitant]
     Active Substance: VITAMINS
  5. DILTIAZEM HYDROCHLORIDE. [Concomitant]
     Active Substance: DILTIAZEM HYDROCHLORIDE

REACTIONS (6)
  - Diarrhoea [Not Recovered/Not Resolved]
  - Alopecia [Recovering/Resolving]
  - Limb discomfort [Unknown]
  - Pain in extremity [Unknown]
  - Nasopharyngitis [Unknown]
  - Asthma [Unknown]

NARRATIVE: CASE EVENT DATE: 2013
